FAERS Safety Report 7502726-X (Version None)
Quarter: 2011Q2

REPORT INFORMATION
  Report Type: 
  Country: None (occurrence: None)
  Receive Date: 20110518
  Receipt Date: 20110503
  Transmission Date: 20111010
  Serious: Yes (Hospitalization)
  Sender: FDA-Public Use
  Company Number: COL_08544_2011

PATIENT
  Age: 60 Year
  Sex: Female

DRUGS (1)
  1. ORABASE MAXIMUM STRENGTH ORAL PAIN RELIEVER (20% BENZOCAINE) [Suspect]
     Indication: ORAL PAIN
     Dosage: (ORAL)
     Route: 048

REACTIONS (1)
  - PALPITATIONS [None]
